FAERS Safety Report 12273360 (Version 1)
Quarter: 2016Q2

REPORT INFORMATION
  Report Type: Report from Study
  Country: US (occurrence: US)
  Receive Date: 20160415
  Receipt Date: 20160415
  Transmission Date: 20160815
  Serious: Yes (Hospitalization)
  Sender: FDA-Public Use
  Company Number: US-GILEAD-2016-0208762

PATIENT
  Age: 65 Year
  Sex: Female

DRUGS (1)
  1. AMBRISENTAN [Suspect]
     Active Substance: AMBRISENTAN
     Indication: SYSTEMIC SCLEROSIS
     Dosage: 10 MG, QD
     Route: 065
     Dates: start: 20150909

REACTIONS (5)
  - Off label use [Not Recovered/Not Resolved]
  - Haemoglobin decreased [Unknown]
  - Large intestine polyp [Unknown]
  - Haematochezia [Unknown]
  - Drug dose omission [Recovered/Resolved]

NARRATIVE: CASE EVENT DATE: 20150909
